FAERS Safety Report 10224748 (Version 1)
Quarter: 2014Q2

REPORT INFORMATION
  Report Type: Spontaneous
  Country: GB (occurrence: GB)
  Receive Date: 20140609
  Receipt Date: 20140609
  Transmission Date: 20141212
  Serious: Yes (Other)
  Sender: FDA-Public Use
  Company Number: GB-B.I. PHARMACEUTICALS,INC./RIDGEFIELD-2014-BI-24775UK

PATIENT
  Age: 63 Year
  Sex: Male

DRUGS (8)
  1. JENTADUETO [Suspect]
     Indication: DIABETES MELLITUS
     Dosage: 5 MG
     Route: 048
     Dates: start: 20140515, end: 20140519
  2. ASPIRIN [Concomitant]
     Route: 065
  3. CO-CODAMOL [Concomitant]
     Route: 065
  4. GLICLAZIDE [Concomitant]
     Dosage: DOSE PER APPLICATION AND DAILY DOSE: 1DF
     Route: 065
  5. GLICLAZIDE [Concomitant]
     Dosage: DOSE PER APPLICATION AND DAILY DOSE: 2DF
     Route: 065
  6. LANSOPRAZOLE [Concomitant]
     Route: 065
  7. METFORMIN [Concomitant]
     Route: 065
  8. RAMIPRIL [Concomitant]
     Route: 065

REACTIONS (3)
  - Blood glucose increased [Unknown]
  - Chest discomfort [Recovered/Resolved]
  - Paraesthesia [Recovered/Resolved]
